FAERS Safety Report 19566408 (Version 4)
Quarter: 2021Q3

REPORT INFORMATION
  Report Type: Report from Study
  Country: AR (occurrence: AR)
  Receive Date: 20210714
  Receipt Date: 20210901
  Transmission Date: 20211014
  Serious: Yes (Death, Hospitalization, Other)
  Sender: FDA-Public Use
  Company Number: NVSC2021AR155539

PATIENT
  Age: 63 Year
  Sex: Male

DRUGS (3)
  1. TASIGNA [Suspect]
     Active Substance: NILOTINIB
     Dosage: UNK
     Route: 065
     Dates: start: 20210703
  2. FILGRASTIM [Concomitant]
     Active Substance: FILGRASTIM
     Indication: PRODUCT USED FOR UNKNOWN INDICATION
     Dosage: 300 UG, QW
     Route: 058
  3. TASIGNA [Suspect]
     Active Substance: NILOTINIB
     Indication: PHILADELPHIA POSITIVE CHRONIC MYELOID LEUKAEMIA
     Dosage: 800 MG, BID
     Route: 048
     Dates: start: 20160101, end: 20210617

REACTIONS (15)
  - COVID-19 pneumonia [Unknown]
  - Pyrexia [Unknown]
  - Death [Fatal]
  - Sepsis [Unknown]
  - Renal impairment [Unknown]
  - Leukopenia [Unknown]
  - Fatigue [Unknown]
  - Myalgia [Unknown]
  - Varices oesophageal [Unknown]
  - Respiratory failure [Unknown]
  - Incorrect dose administered [Unknown]
  - Klebsiella test positive [Unknown]
  - Cough [Unknown]
  - Jaundice [Unknown]
  - Multiple organ dysfunction syndrome [Unknown]

NARRATIVE: CASE EVENT DATE: 20210617
